FAERS Safety Report 7266490-4 (Version None)
Quarter: 2011Q1

REPORT INFORMATION
  Report Type: 
  Country: None (occurrence: None)
  Receive Date: 20110131
  Receipt Date: 20110125
  Transmission Date: 20110831
  Serious: Yes (Hospitalization)
  Sender: FDA-Public Use
  Company Number: US-B.I. PHARMACEUTICALS,INC./RIDGEFIELD-2011-BP-01573BP

PATIENT
  Age: 79 Year
  Sex: Female

DRUGS (11)
  1. CRESTOR [Concomitant]
     Indication: BLOOD CHOLESTEROL INCREASED
  2. METFORMIN [Concomitant]
     Indication: DIABETES MELLITUS
  3. LASIX [Concomitant]
     Indication: CARDIAC FAILURE CONGESTIVE
  4. PRADAXA [Suspect]
     Indication: ATRIAL FIBRILLATION
     Dosage: 300 MG
     Route: 048
     Dates: start: 20101101
  5. REGLAN [Concomitant]
     Indication: GASTRIC DISORDER
  6. SINEMET [Concomitant]
     Indication: PARKINSON'S DISEASE
  7. TOPROL-XL [Concomitant]
     Indication: HYPERTENSION
  8. POTASSIUM [Concomitant]
     Indication: SUPPLEMENTATION THERAPY
  9. CORBADRE [Concomitant]
     Indication: PARKINSON'S DISEASE
  10. ASPIRIN [Concomitant]
     Indication: ATRIAL FIBRILLATION
     Dosage: 81 MG
  11. CARDIZEM [Concomitant]
     Indication: ATRIAL FIBRILLATION

REACTIONS (7)
  - DIARRHOEA [None]
  - DYSPNOEA [None]
  - INFLUENZA [None]
  - BLOOD COUNT ABNORMAL [None]
  - HEART RATE IRREGULAR [None]
  - PAIN IN EXTREMITY [None]
  - ASTHENIA [None]
